FAERS Safety Report 6761746-3 (Version None)
Quarter: 2010Q2

REPORT INFORMATION
  Report Type: 
  Country: None (occurrence: None)
  Receive Date: 20100426
  Receipt Date: 20100412
  Transmission Date: 20101027
  Serious: Yes (Life-Threatening, Hospitalization)
  Sender: FDA-Public Use
  Company Number: 2010022431

PATIENT
  Sex: Male

DRUGS (7)
  1. HAEMATE P (ANTIHEMOPHILIC FACTOR (HUMAN) VWF, DRIED, PASTEURIZED) LOT# [Suspect]
     Indication: IMMUNOSUPPRESSANT DRUG THERAPY
     Dosage: 2 ML 1X/MINUTE, INTRAVENOUS
     Route: 042
  2. HAEMATE P (ANTIHEMOPHILIC FACTOR (HUMAN) VWF, DRIED, PASTEURIZED) LOT# [Suspect]
  3. FEIBA [Concomitant]
  4. VANCOMYCIN [Concomitant]
  5. AMIKIN [Concomitant]
  6. OXACILLIN [Concomitant]
  7. FOLIC ACID [Concomitant]

REACTIONS (3)
  - GENERAL PHYSICAL HEALTH DETERIORATION [None]
  - HEADACHE [None]
  - PYREXIA [None]
